FAERS Safety Report 7807176-4 (Version None)
Quarter: 2011Q4

REPORT INFORMATION
  Report Type: 
  Country: None (occurrence: None)
  Receive Date: 20111011
  Receipt Date: 20110927
  Transmission Date: 20120403
  Serious: Yes (Hospitalization)
  Sender: FDA-Public Use
  Company Number: PHHY2011BR86489

PATIENT
  Sex: Male

DRUGS (4)
  1. DIUPRESS [Suspect]
     Indication: HYPERTENSION
     Dosage: 1 DF(25 MG), DAILY
  2. DAFLON (DIOSMIN/HESPERIDIN) [Concomitant]
     Indication: CARDIOVASCULAR INSUFFICIENCY
     Dosage: 2 DF, UNK
     Route: 048
  3. ATENOLOL [Suspect]
     Indication: HYPERTENSION
     Dosage: 1 DF(25 MG), DAILY
  4. EXFORGE [Suspect]
     Indication: HYPERTENSION
     Dosage: 1 DF (160 MG VALS AND 5 MG AMLO), DAILY
     Route: 048

REACTIONS (5)
  - SKIN NECROSIS [None]
  - PYREXIA [None]
  - SKIN ULCER [None]
  - INJURY [None]
  - SKIN PLAQUE [None]
